FAERS Safety Report 21357121 (Version 3)
Quarter: 2022Q4

REPORT INFORMATION
  Report Type: Report from Study
  Country: US (occurrence: US)
  Receive Date: 20220921
  Receipt Date: 20221006
  Transmission Date: 20230113
  Serious: Yes (Other)
  Sender: FDA-Public Use
  Company Number: US-ABBVIE-4127164

PATIENT
  Age: 78 Year
  Sex: Female

DRUGS (2)
  1. CREON [Suspect]
     Active Substance: PANCRELIPASE AMYLASE\PANCRELIPASE LIPASE\PANCRELIPASE PROTEASE
     Indication: Pancreatitis chronic
     Route: 048
  2. CREON [Suspect]
     Active Substance: PANCRELIPASE AMYLASE\PANCRELIPASE LIPASE\PANCRELIPASE PROTEASE
     Indication: Pancreatitis chronic
     Route: 048

REACTIONS (14)
  - Arterial occlusive disease [Unknown]
  - Chest discomfort [Not Recovered/Not Resolved]
  - Cerebrovascular accident [Unknown]
  - Renal disorder [Unknown]
  - Bladder disorder [Unknown]
  - COVID-19 [Recovering/Resolving]
  - Cardiovascular disorder [Unknown]
  - Thyroid disorder [Not Recovered/Not Resolved]
  - Renal impairment [Not Recovered/Not Resolved]
  - Unevaluable event [Unknown]
  - Urinary incontinence [Not Recovered/Not Resolved]
  - Weight decreased [Not Recovered/Not Resolved]
  - Device placement issue [Unknown]
  - Stent placement [Unknown]

NARRATIVE: CASE EVENT DATE: 20220801
